FAERS Safety Report 4463510-7 (Version None)
Quarter: 2004Q3

REPORT INFORMATION
  Report Type: 
  Country: None (occurrence: None)
  Receive Date: 20040930
  Receipt Date: 20040813
  Transmission Date: 20050211
  Serious: Yes (Hospitalization, Other)
  Sender: FDA-Public Use
  Company Number: US-MERCK-0408USA01205

PATIENT
  Age: 65 Year
  Sex: Female
  Weight: 137 kg

DRUGS (11)
  1. ALLOPURINOL [Concomitant]
     Route: 048
  2. ATENOLOL [Concomitant]
     Route: 065
  3. ATENOLOL [Concomitant]
     Route: 065
  4. LIPITOR [Concomitant]
     Route: 065
  5. BUMEX [Concomitant]
     Route: 065
  6. COLACE [Concomitant]
     Route: 065
  7. LOVENOX [Concomitant]
     Route: 058
  8. NEURONTIN [Concomitant]
     Route: 065
  9. GLIPIZIDE [Concomitant]
     Route: 065
  10. LANTUS [Concomitant]
     Route: 065
  11. VIOXX [Suspect]
     Indication: POST PROCEDURAL PAIN
     Route: 048
     Dates: start: 20040806, end: 20040807

REACTIONS (15)
  - ANAEMIA [None]
  - ASTERIXIS [None]
  - CHEST PAIN [None]
  - CLOSTRIDIUM COLITIS [None]
  - DEHYDRATION [None]
  - DYSPNOEA [None]
  - FLUID RETENTION [None]
  - INCREASED UPPER AIRWAY SECRETION [None]
  - OEDEMA [None]
  - OPEN WOUND [None]
  - PYREXIA [None]
  - RENAL FAILURE ACUTE [None]
  - RESPIRATORY FAILURE [None]
  - SKIN ULCER [None]
  - TREMOR [None]
